FAERS Safety Report 7906365-8 (Version None)
Quarter: 2011Q4

REPORT INFORMATION
  Report Type: 
  Country: None (occurrence: None)
  Receive Date: 20111110
  Receipt Date: 20111102
  Transmission Date: 20120403
  Serious: Yes (Disabling, Other)
  Sender: FDA-Public Use
  Company Number: JP-GENZYME-THYM-1002882

PATIENT
  Weight: 26 kg

DRUGS (13)
  1. FLUDARABINE PHOSPHATE [Concomitant]
     Indication: CONGENITAL DYSKERATOSIS
     Dosage: UNK
     Dates: start: 20091126, end: 20091130
  2. METHOTREXATE [Concomitant]
     Indication: PROPHYLAXIS AGAINST GRAFT VERSUS HOST DISEASE
     Dosage: UNK
     Dates: start: 20091203, end: 20091203
  3. MELPHALAN HYDROCHLORIDE [Concomitant]
     Indication: CONGENITAL DYSKERATOSIS
     Dosage: UNK
     Dates: start: 20091129, end: 20091130
  4. METHOTREXATE [Concomitant]
     Dosage: UNK
     Dates: start: 20091208, end: 20091208
  5. FILGRASTIM [Concomitant]
     Indication: PROPHYLAXIS
     Dosage: UNK
     Dates: start: 20091207, end: 20091217
  6. TACROLIMUS [Concomitant]
     Indication: PROPHYLAXIS AGAINST GRAFT VERSUS HOST DISEASE
     Dosage: UNK
     Dates: start: 20091201, end: 20100201
  7. FLUCONAZOLE [Concomitant]
     Indication: INFECTION PROPHYLAXIS
     Dosage: UNK
     Dates: end: 20091130
  8. SULFAMETHOPRIM [Concomitant]
     Dosage: UNK
     Dates: start: 20091215
  9. SULFAMETHOPRIM [Concomitant]
     Indication: INFECTION PROPHYLAXIS
     Dosage: UNK
     Dates: end: 20091125
  10. METHOTREXATE [Concomitant]
     Dosage: UNK
     Dates: start: 20091205, end: 20091205
  11. THYMOGLOBULIN [Suspect]
     Indication: BONE MARROW CONDITIONING REGIMEN
     Dosage: 60 MG, QD
     Route: 042
     Dates: start: 20091126, end: 20091127
  12. ACYCLOVIR [Concomitant]
     Indication: INFECTION PROPHYLAXIS
     Dosage: UNK
     Dates: start: 20091125
  13. MICAFUNGIN SODIUM [Concomitant]
     Indication: INFECTION PROPHYLAXIS
     Dosage: UNK
     Dates: start: 20091201

REACTIONS (4)
  - ACUTE GRAFT VERSUS HOST DISEASE IN LIVER [None]
  - POSTERIOR REVERSIBLE ENCEPHALOPATHY SYNDROME [None]
  - ACUTE GRAFT VERSUS HOST DISEASE IN SKIN [None]
  - ACUTE GRAFT VERSUS HOST DISEASE IN INTESTINE [None]
